FAERS Safety Report 24248066 (Version 3)
Quarter: 2024Q4

REPORT INFORMATION
  Report Type: Spontaneous
  Country: ES (occurrence: ES)
  Receive Date: 20240826
  Receipt Date: 20241216
  Transmission Date: 20250114
  Serious: Yes (Death, Other)
  Sender: MELINTA THERAPEUTICS
  Company Number: None

PATIENT

DRUGS (1)
  1. ORITAVANCIN [Suspect]
     Active Substance: ORITAVANCIN
     Indication: Postoperative wound infection
     Dosage: 800 MILLIGRAM (2 X 1 VIAL OF 400 MG)
     Route: 042
     Dates: start: 20240719, end: 20240719

REACTIONS (6)
  - Multiple organ dysfunction syndrome [Fatal]
  - Apnoea [Fatal]
  - Pyrexia [Recovered/Resolved]
  - Nausea [Recovered/Resolved]
  - Vomiting [Recovered/Resolved]
  - Prescribed underdose [Recovered/Resolved]

NARRATIVE: CASE EVENT DATE: 20240719
